FAERS Safety Report 13412886 (Version 3)
Quarter: 2018Q1

REPORT INFORMATION
  Report Type: Spontaneous
  Country: US (occurrence: US)
  Receive Date: 20170406
  Receipt Date: 20180310
  Transmission Date: 20180508
  Serious: No
  Sender: FDA-Public Use
  Company Number: US-JNJFOC-20170312472

PATIENT
  Sex: Male

DRUGS (7)
  1. RISPERDAL [Suspect]
     Active Substance: RISPERIDONE
     Indication: BIPOLAR DISORDER
     Dosage: 2 MG AND 4 MG AT BED TIME
     Route: 048
     Dates: start: 20080415, end: 20140416
  2. RISPERDAL [Suspect]
     Active Substance: RISPERIDONE
     Indication: SCHIZOPHRENIA
     Dosage: 2 MG AND 4 MG AT BED TIME
     Route: 048
     Dates: start: 20080415, end: 20140416
  3. RISPERDAL CONSTA [Suspect]
     Active Substance: RISPERIDONE
     Indication: SCHIZOPHRENIA
     Dosage: 25 MG IM, 37.5 MG IM AND 50 MG IM KIT
     Route: 030
     Dates: start: 20081125, end: 20140416
  4. RISPERIDONE. [Suspect]
     Active Substance: RISPERIDONE
     Indication: BIPOLAR DISORDER
     Dosage: 4 MG, 2 AND 3 MG
     Route: 048
     Dates: start: 20080731, end: 20120305
  5. RISPERIDONE. [Suspect]
     Active Substance: RISPERIDONE
     Indication: SCHIZOPHRENIA
     Dosage: 4 MG, 2 AND 3 MG
     Route: 048
     Dates: start: 20080731, end: 20120305
  6. RISPERDAL CONSTA [Suspect]
     Active Substance: RISPERIDONE
     Indication: BIPOLAR DISORDER
     Dosage: 25 MG IM, 37.5 MG IM AND 50 MG IM KIT
     Route: 030
     Dates: start: 20081125, end: 20140416
  7. RISPERIDONE. [Suspect]
     Active Substance: RISPERIDONE
     Indication: PRODUCT USED FOR UNKNOWN INDICATION
     Dosage: 4 AND 3 MG
     Route: 048
     Dates: start: 20120813, end: 20130904

REACTIONS (2)
  - Gynaecomastia [Unknown]
  - Emotional distress [Unknown]
